FAERS Safety Report 7936293-3 (Version None)
Quarter: 2011Q4

REPORT INFORMATION
  Report Type: 
  Country: None (occurrence: None)
  Receive Date: 20111121
  Receipt Date: 20111110
  Transmission Date: 20120403
  Serious: Yes (Death)
  Sender: FDA-Public Use
  Company Number: 2011MA015797

PATIENT
  Age: 65 Year
  Sex: Male

DRUGS (6)
  1. VALPROATE SODIUM [Suspect]
     Indication: EPILEPSY
     Dosage: 200 MG; QD
  2. TEMAZEPAM [Concomitant]
  3. OMEPRAZOLE [Suspect]
     Dosage: 20 MG; QD
  4. METFORMIN HYDROCHLORIDE [Suspect]
     Dosage: 850 MG, TID
  5. LIPITOR [Concomitant]
  6. GLICLAZIDE [Concomitant]

REACTIONS (3)
  - EXSANGUINATION [None]
  - PSYCHOTIC DISORDER [None]
  - LEG AMPUTATION [None]
